FAERS Safety Report 8610444-X (Version None)
Quarter: 2012Q3

REPORT INFORMATION
  Report Type: 
  Country: None (occurrence: None)
  Receive Date: 20120822
  Receipt Date: 20120819
  Transmission Date: 20120928
  Serious: No
  Sender: FDA-Public Use
  Company Number: US-PFIZER INC-2012203011

PATIENT
  Age: 55 Year
  Sex: Female
  Weight: 78.005 kg

DRUGS (7)
  1. COMBIVENT [Concomitant]
     Indication: DYSPNOEA
     Dosage: UNK, 4X/DAY
  2. CHANTIX [Suspect]
     Indication: SMOKING CESSATION THERAPY
     Dosage: 0.5 MG, 1X/DAY
     Route: 048
     Dates: start: 20120811, end: 20120801
  3. ASACOL [Concomitant]
     Indication: COLITIS
     Dosage: 2 DF, 1X/DAY
  4. LOSARTAN [Concomitant]
     Indication: HYPERTENSION
     Dosage: 100 MG, 1X/DAY
  5. CHANTIX [Suspect]
     Dosage: 1 MG, 2X/DAY
     Route: 048
     Dates: start: 20120801
  6. SINGULAIR [Concomitant]
     Indication: DYSPNOEA
     Dosage: 10 MG, 1X/DAY
  7. PROGESTERONE W/ESTROGENS/ [Concomitant]
     Dosage: UNK

REACTIONS (3)
  - SOMNOLENCE [None]
  - DISTURBANCE IN ATTENTION [None]
  - DIZZINESS [None]
